FAERS Safety Report 6638073-8 (Version None)
Quarter: 2010Q1

REPORT INFORMATION
  Report Type: 
  Country: None (occurrence: None)
  Receive Date: 20100317
  Receipt Date: 20100305
  Transmission Date: 20100710
  Serious: Yes (Death)
  Sender: FDA-Public Use
  Company Number: JP-PFIZER INC-2009288802

PATIENT
  Age: 68 Year
  Sex: Female
  Weight: 50 kg

DRUGS (6)
  1. SUNITINIB MALATE [Suspect]
     Indication: RENAL CELL CARCINOMA
     Dosage: 50 MG, 1X/DAY
     Route: 048
     Dates: start: 20090722, end: 20090805
  2. OXYCONTIN [Concomitant]
     Route: 048
     Dates: end: 20090802
  3. LOXONIN [Concomitant]
     Route: 048
     Dates: end: 20090817
  4. SELBEX [Concomitant]
     Route: 048
     Dates: end: 20090817
  5. PRIMPERAN INJ [Concomitant]
     Route: 048
     Dates: end: 20090817
  6. MAG-LAX [Concomitant]
     Route: 048
     Dates: end: 20090818

REACTIONS (1)
  - MYOCARDIAL ISCHAEMIA [None]
